FAERS Safety Report 4639953-5 (Version None)
Quarter: 2005Q2

REPORT INFORMATION
  Report Type: 
  Country: None (occurrence: None)
  Receive Date: 20050415
  Receipt Date: 20050325
  Transmission Date: 20051028
  Serious: Yes (Hospitalization)
  Sender: FDA-Public Use
  Company Number: JP_050306214

PATIENT
  Age: 29 Year
  Sex: Female
  Weight: 65 kg

DRUGS (4)
  1. ZYPREXA [Suspect]
     Indication: SCHIZOPHRENIA
     Dosage: 10 MG DAY
     Dates: start: 20040325, end: 20040920
  2. LEVOMEPROMAZINE [Concomitant]
  3. FLUNITRAZEPAM [Concomitant]
  4. SENNOSIDE (SENNOSIDE A+B CALCIUM) [Concomitant]

REACTIONS (3)
  - AGGRESSION [None]
  - CHEMICAL POISONING [None]
  - SUICIDE ATTEMPT [None]
